FAERS Safety Report 9931598 (Version 2)
Quarter: 2014Q1

REPORT INFORMATION
  Report Type: Spontaneous
  Country: DE (occurrence: None)
  Receive Date: 20140224
  Receipt Date: 20140227
  Transmission Date: 20141002
  Serious: Yes (Life-Threatening, Hospitalization, Other)
  Sender: FDA-Public Use
  Company Number: AUR-APL-2014-01938

PATIENT
  Age: 71 Year
  Sex: Male
  Weight: 90 kg

DRUGS (11)
  1. RAMIPRIL [Suspect]
     Indication: HYPERTENSION
     Route: 048
     Dates: end: 20140202
  2. SIMVASTATIN (SIMVASTATIN) [Suspect]
     Indication: HYPERLIPIDAEMIA
     Route: 048
     Dates: end: 20140202
  3. EVACETRAPIB [Suspect]
     Indication: HYPERLIPIDAEMIA
     Route: 048
     Dates: end: 20140202
  4. GALVUS [Suspect]
     Indication: TYPE 2 DIABETES MELLITUS
     Route: 048
     Dates: end: 20140202
  5. ASS (ACETYLSALICYLIC ACID) [Concomitant]
  6. FENOFIBRATE (FENOFIBRATE) (FENOFIBRATE) [Concomitant]
  7. CARVEDILOL (CARVEDILOL) [Concomitant]
  8. SPIRONOLAKTON (SPIRONOLACTONE) [Concomitant]
  9. DIGITOXIN (DIGITOXIN) [Concomitant]
  10. TORASEMIDE (TORASEMIDE) [Concomitant]
  11. MARCUMAR (PHENPROCOUMON) [Concomitant]

REACTIONS (8)
  - Renal failure acute [None]
  - Blood creatine phosphokinase increased [None]
  - Haematocrit decreased [None]
  - Platelet count decreased [None]
  - Blood sodium decreased [None]
  - Blood potassium increased [None]
  - Blood chloride decreased [None]
  - Blood triglycerides increased [None]
